FAERS Safety Report 15955006 (Version 2)
Quarter: 2019Q1

REPORT INFORMATION
  Report Type: Spontaneous
  Country: JP (occurrence: JP)
  Receive Date: 20190213
  Receipt Date: 20190222
  Transmission Date: 20190417
  Serious: Yes (Death, Hospitalization, Other)
  Sender: FDA-Public Use
  Company Number: JP-SA-2019SA037534

PATIENT
  Age: 66 Year
  Sex: Male

DRUGS (10)
  1. OXYGEN. [Concomitant]
     Active Substance: OXYGEN
     Dosage: 5 L
  2. CYCLOPHOSPHAMIDE. [Suspect]
     Active Substance: CYCLOPHOSPHAMIDE
     Indication: ANGIOIMMUNOBLASTIC T-CELL LYMPHOMA
     Dosage: UNK UNK, QCY
  3. VINCRISTINE SULFATE. [Suspect]
     Active Substance: VINCRISTINE SULFATE
     Indication: ANGIOIMMUNOBLASTIC T-CELL LYMPHOMA
     Dosage: UNK UNK, QCY
  4. ETHAMBUTOL [Suspect]
     Active Substance: ETHAMBUTOL HYDROCHLORIDE
     Indication: MYCOBACTERIUM AVIUM COMPLEX INFECTION
     Dosage: 900 MG, QD, 17 MG/KG
  5. PREDNISONE. [Suspect]
     Active Substance: PREDNISONE
     Indication: ANGIOIMMUNOBLASTIC T-CELL LYMPHOMA
     Dosage: UNK UNK, QCY
  6. RITUXIMAB. [Suspect]
     Active Substance: RITUXIMAB
     Indication: ASCITES
  7. RIFAMPICIN [Suspect]
     Active Substance: RIFAMPIN
     Indication: MYCOBACTERIUM AVIUM COMPLEX INFECTION
     Dosage: 600 MG, QD, 11 MG/KG
  8. DOXORUBICIN [Suspect]
     Active Substance: DOXORUBICIN
     Indication: ANGIOIMMUNOBLASTIC T-CELL LYMPHOMA
     Dosage: UNK, QCY
  9. PREDNISOLONE. [Suspect]
     Active Substance: PREDNISOLONE
     Indication: ASCITES
  10. CLARITHROMYCIN. [Suspect]
     Active Substance: CLARITHROMYCIN
     Indication: MYCOBACTERIUM AVIUM COMPLEX INFECTION
     Dosage: 800 MG, QD

REACTIONS (13)
  - Lymphadenopathy [Recovered/Resolved]
  - Pyrexia [Recovered/Resolved]
  - Renal failure [Fatal]
  - Mycobacterium avium complex infection [Recovered/Resolved]
  - Hypoxia [Recovered/Resolved]
  - Hepatomegaly [Recovered/Resolved]
  - Hepatic function abnormal [Unknown]
  - Chills [Recovered/Resolved]
  - Ascites [Fatal]
  - Neuropathy peripheral [Unknown]
  - Abdominal pain upper [Fatal]
  - Peritonitis bacterial [Fatal]
  - Gastrointestinal disorder [Unknown]
